FAERS Safety Report 25178211 (Version 1)
Quarter: 2025Q2

REPORT INFORMATION
  Report Type: Spontaneous
  Country: IT (occurrence: IT)
  Receive Date: 20250409
  Receipt Date: 20250409
  Transmission Date: 20250716
  Serious: Yes (Hospitalization)
  Sender: MYLAN
  Company Number: IT-MYLANLABS-2025M1029414

PATIENT
  Age: 87 Year
  Sex: Male

DRUGS (1)
  1. ALLOPURINOL [Suspect]
     Active Substance: ALLOPURINOL
     Indication: Hyperuricaemia

REACTIONS (3)
  - Stevens-Johnson syndrome [Recovered/Resolved]
  - Renal impairment [Recovering/Resolving]
  - Hydronephrosis [Recovering/Resolving]

NARRATIVE: CASE EVENT DATE: 20230101
